FAERS Safety Report 7085722-9 (Version None)
Quarter: 2010Q4

REPORT INFORMATION
  Report Type: 
  Country: None (occurrence: None)
  Receive Date: 20101105
  Receipt Date: 20101028
  Transmission Date: 20110411
  Serious: Yes (Other)
  Sender: FDA-Public Use
  Company Number: DE-PFIZER INC-2010112177

PATIENT
  Age: 38 Year
  Sex: Male
  Weight: 76 kg

DRUGS (1)
  1. CHAMPIX [Suspect]
     Dosage: 1 TABLET/DAILY
     Route: 048
     Dates: start: 20100802, end: 20100825

REACTIONS (5)
  - ALOPECIA [None]
  - CONSTIPATION [None]
  - GASTRITIS [None]
  - HEADACHE [None]
  - NAUSEA [None]
